FAERS Safety Report 17313166 (Version 3)
Quarter: 2020Q4

REPORT INFORMATION
  Report Type: Other
  Country: US (occurrence: US)
  Receive Date: 20200124
  Receipt Date: 20201217
  Transmission Date: 20210113
  Serious: Yes (Other)
  Sender: FDA-Public Use
  Company Number: US-ROCHE-2529703

PATIENT
  Sex: Female

DRUGS (14)
  1. METFORMIN [Concomitant]
     Active Substance: METFORMIN HYDROCHLORIDE
     Dosage: 1 BY MOUTH TWICE A DAY
     Route: 048
  2. POTASSIUM CHLORIDE ER [Concomitant]
     Active Substance: POTASSIUM CHLORIDE
     Dosage: TAKE ONE PILL ONLY IF YOU TAKE A LASIX PILL
  3. BACTRIM DS [Concomitant]
     Active Substance: SULFAMETHOXAZOLE\TRIMETHOPRIM
     Dosage: 800 MG - 160 MG TABLET?TAKE 1 PILL TWICE DAILY FOR 10 DAYS
     Route: 048
  4. ROPINIROLE. [Concomitant]
     Active Substance: ROPINIROLE
     Dosage: 1 BY MOUTH EVERY DAY AT BEDTIME
     Route: 048
  5. ALECENSA [Suspect]
     Active Substance: ALECTINIB HYDROCHLORIDE
     Indication: BRAIN NEOPLASM MALIGNANT
  6. LEVOTHYROXINE. [Concomitant]
     Active Substance: LEVOTHYROXINE
     Dosage: 100 MCG 1 BY MOUTH EVERY DAY
     Route: 048
  7. LASIX [Concomitant]
     Active Substance: FUROSEMIDE
     Dosage: TAKE ONLY AS NEEDED TO HELP WITH SWELLING. TAKE KCI IF YOU TAKE LASIX
  8. LISINOPRIL. [Concomitant]
     Active Substance: LISINOPRIL
     Dosage: 1 BY MOUTH EVERY DAY
     Route: 048
  9. ALECENSA [Suspect]
     Active Substance: ALECTINIB HYDROCHLORIDE
     Indication: LUNG NEOPLASM MALIGNANT
     Dosage: TAKE 4 CAPSULE BY MOUTH TWICE A DAY
     Route: 048
     Dates: start: 20191127
  10. RED YEAST RICE [Concomitant]
     Active Substance: DIETARY SUPPLEMENT
     Dosage: 1 BY MOUTH EVERY DAY
     Route: 048
  11. CRIZOTINIB [Concomitant]
     Active Substance: CRIZOTINIB
     Dosage: 1 BY MOUTH TWICE A DAY
     Route: 048
  12. PROMETHAZINE DM [Concomitant]
     Active Substance: DEXTROMETHORPHAN HYDROBROMIDE\PROMETHAZINE HYDROCHLORIDE
     Dosage: 6.25 MG-15 MG/5 ML SYRUP AND 5 ML EVERY 4-6 HOURS BY MOUTH FOR COUGH
     Route: 048
  13. TESSALON [Concomitant]
     Active Substance: BENZONATATE
     Dosage: TAKE 1 BY MOUTH EVERY 8 HRS FOR COUGH
     Route: 048
  14. ALECENSA [Suspect]
     Active Substance: ALECTINIB HYDROCHLORIDE
     Indication: LUNG NEOPLASM MALIGNANT

REACTIONS (3)
  - Weight increased [Unknown]
  - Arthritis [Unknown]
  - Brain neoplasm malignant [Unknown]
